FAERS Safety Report 7357383-2 (Version None)
Quarter: 2011Q1

REPORT INFORMATION
  Report Type: 
  Country: None (occurrence: None)
  Receive Date: 20110317
  Receipt Date: 20110311
  Transmission Date: 20110831
  Serious: Yes (Hospitalization, Other)
  Sender: FDA-Public Use
  Company Number: ES-ELI_LILLY_AND_COMPANY-ES201103003480

PATIENT
  Sex: Female

DRUGS (7)
  1. GELOCATIL [Concomitant]
     Indication: PAIN
     Dosage: 3 D/F, DAILY (1/D)
     Route: 048
  2. OMEPRAZOLE [Concomitant]
     Indication: GASTRIC DISORDER
     Dosage: 1 D/F, DAILY (1/D)
     Route: 048
  3. DEPRAX [Concomitant]
     Indication: SLEEP DISORDER
     Dosage: 1 D/F, DAILY (1/D)
     Route: 048
  4. FORTEO [Suspect]
     Indication: OSTEOPOROSIS
     Dosage: 20 UG, DAILY (1/D)
     Route: 058
     Dates: start: 20110223
  5. ENANTYUM [Concomitant]
     Dosage: 1 D/F, DAILY (1/D)
     Route: 048
  6. NOLOTIL [Concomitant]
     Indication: PAIN
     Dosage: 6 D/F, DAILY (1/D)
     Route: 048
  7. MORPHINE [Concomitant]
     Indication: PAIN
     Dosage: 1 D/F, EVERY THREE DAYS
     Route: 062

REACTIONS (2)
  - CONSTIPATION [None]
  - PANCREATIC CARCINOMA [None]
